FAERS Safety Report 5396980-0 (Version None)
Quarter: 2007Q3

REPORT INFORMATION
  Report Type: 
  Country: None (occurrence: None)
  Receive Date: 20070725
  Receipt Date: 20070405
  Transmission Date: 20080115
  Serious: No
  Sender: FDA-Public Use
  Company Number: US-BAUSCH-2007BL001136

PATIENT
  Age: 50 Year
  Sex: Male

DRUGS (2)
  1. TROPICAMIDE [Suspect]
     Indication: OPHTHALMOLOGICAL EXAMINATION
     Route: 047
     Dates: start: 20070219, end: 20070219
  2. PHENYLEPHRINE HYDROCHLORIDE OPHTHALMIC SOLUTION USP 2.5% [Suspect]
     Indication: OPHTHALMOLOGICAL EXAMINATION
     Route: 047
     Dates: start: 20070219, end: 20070219

REACTIONS (1)
  - DRUG EFFECT PROLONGED [None]
